FAERS Safety Report 6938164-8 (Version None)
Quarter: 2010Q3

REPORT INFORMATION
  Report Type: 
  Country: None (occurrence: None)
  Receive Date: 20100824
  Receipt Date: 20100812
  Transmission Date: 20110219
  Serious: Yes (Other)
  Sender: FDA-Public Use
  Company Number: PHFR2010GB01213

PATIENT
  Sex: Female

DRUGS (5)
  1. CLOZARIL [Suspect]
     Indication: SCHIZOPHRENIA
     Dosage: 300MG/DAY
     Route: 048
     Dates: start: 20100625
  2. SULPIRIDE [Concomitant]
     Indication: MENTAL DISORDER
     Dosage: 400MG/DAY
     Route: 048
  3. TEMAZEPAM [Concomitant]
     Indication: SLEEP DISORDER
     Dosage: 15MG/DAY
     Route: 048
  4. MIRTAZAPINE [Concomitant]
     Indication: DEMENTIA
     Dosage: 45MG/DAY
     Route: 048
  5. HYOSCINE HBR HYT [Concomitant]
     Indication: EXTRAPYRAMIDAL DISORDER
     Dosage: UNK
     Route: 048

REACTIONS (2)
  - LEUKAEMIA [None]
  - LYMPHOCYTE COUNT INCREASED [None]
